FAERS Safety Report 24959343 (Version 1)
Quarter: 2025Q1

REPORT INFORMATION
  Report Type: Spontaneous
  Country: CA (occurrence: CA)
  Receive Date: 20250212
  Receipt Date: 20250212
  Transmission Date: 20250408
  Serious: Yes (Other)
  Sender: ROCHE
  Company Number: CA-002147023-NVSC2025CA020573

PATIENT
  Age: 48 Year
  Sex: Female

DRUGS (7)
  1. OMALIZUMAB [Suspect]
     Active Substance: OMALIZUMAB
     Indication: Chronic spontaneous urticaria
     Dosage: 300 MG, QMO
     Route: 050
  2. OMALIZUMAB [Suspect]
     Active Substance: OMALIZUMAB
     Dosage: 300 MG, Q4W
     Route: 050
  3. OMALIZUMAB [Suspect]
     Active Substance: OMALIZUMAB
     Route: 050
  4. CYCLOSPORINE [Concomitant]
     Active Substance: CYCLOSPORINE
     Indication: Inflammation
     Route: 065
  5. EZETIMIBE [Concomitant]
     Active Substance: EZETIMIBE
     Indication: Blood cholesterol
     Route: 065
  6. HYDROCHLOROTHIAZIDE [Concomitant]
     Active Substance: HYDROCHLOROTHIAZIDE
     Indication: Oedema
     Route: 065
  7. LISINOPRIL [Concomitant]
     Active Substance: LISINOPRIL
     Indication: Hypertension
     Route: 065

REACTIONS (7)
  - Angioedema [Recovering/Resolving]
  - COVID-19 [Recovering/Resolving]
  - Fatigue [Recovering/Resolving]
  - Muscle strain [Recovering/Resolving]
  - Night sweats [Recovering/Resolving]
  - Urticaria [Recovering/Resolving]
  - Inappropriate schedule of product administration [Unknown]
